FAERS Safety Report 4790501-9 (Version None)
Quarter: 2005Q4

REPORT INFORMATION
  Report Type: 
  Country: None (occurrence: None)
  Receive Date: 20051005
  Receipt Date: 20050916
  Transmission Date: 20060501
  Serious: Yes (Other)
  Sender: FDA-Public Use
  Company Number: USA0509108757

PATIENT
  Age: 29 Year
  Sex: Female

DRUGS (1)
  1. NPH ILETIN I (BEEF-PORK) [Suspect]

REACTIONS (5)
  - BLOOD GLUCOSE DECREASED [None]
  - BOTTLE FEEDING [None]
  - MATERNAL DRUGS AFFECTING FOETUS [None]
  - NEONATAL DISORDER [None]
  - PREMATURE BABY [None]
